FAERS Safety Report 5018485-9 (Version None)
Quarter: 2006Q2

REPORT INFORMATION
  Report Type: 
  Country: None (occurrence: None)
  Receive Date: 20060605
  Receipt Date: 20060523
  Transmission Date: 20061013
  Serious: Yes (Life-Threatening)
  Sender: FDA-Public Use
  Company Number: KE-BOEHRINGER INGELHEIM PHARMACEUTICALS, INC.-2006-BP-05881BP

PATIENT
  Sex: Female
  Weight: 46.3 kg

DRUGS (5)
  1. VIRAMUNE [Suspect]
     Indication: VERTICAL INFECTION TRANSMISSION
     Dates: start: 20060228
  2. COMBIVIR [Suspect]
     Indication: VERTICAL INFECTION TRANSMISSION
     Dates: start: 20060228, end: 20060510
  3. SAFERON [Concomitant]
     Indication: ANAEMIA
  4. FOLATE [Concomitant]
     Indication: ANAEMIA
  5. COTRIMOXAZOLE [Concomitant]
     Indication: PROPHYLAXIS

REACTIONS (5)
  - ANAEMIA [None]
  - CONDITION AGGRAVATED [None]
  - DRUG EXPOSURE DURING PREGNANCY [None]
  - DRUG TOXICITY [None]
  - NEUTROPHIL COUNT DECREASED [None]
